FAERS Safety Report 6371102-8 (Version None)
Quarter: 2009Q3

REPORT INFORMATION
  Report Type: 
  Country: None (occurrence: None)
  Receive Date: 20090923
  Receipt Date: 20090915
  Transmission Date: 20100115
  Serious: Yes (Other)
  Sender: FDA-Public Use
  Company Number: PHEH2008US03330

PATIENT
  Sex: Female

DRUGS (2)
  1. ZOMETA [Suspect]
  2. RADIATION TREATMENT [Concomitant]

REACTIONS (11)
  - ANXIETY [None]
  - BONE NEOPLASM MALIGNANT [None]
  - BOWEL MOVEMENT IRREGULARITY [None]
  - GENERAL PHYSICAL HEALTH DETERIORATION [None]
  - HEADACHE [None]
  - INFECTION [None]
  - MUSCULOSKELETAL PAIN [None]
  - OSTEONECROSIS [None]
  - PAIN [None]
  - SURGERY [None]
  - TOOTHACHE [None]
